FAERS Safety Report 4311860-7 (Version None)
Quarter: 2004Q1

REPORT INFORMATION
  Report Type: 
  Country: None (occurrence: None)
  Receive Date: 20040302
  Receipt Date: 20040104
  Transmission Date: 20041129
  Serious: No
  Sender: FDA-Public Use
  Company Number: 200410089BWH

PATIENT
  Sex: Male

DRUGS (1)
  1. LEVITRA [Suspect]

REACTIONS (2)
  - OEDEMA GENITAL [None]
  - PENILE VASCULAR DISORDER [None]
